FAERS Safety Report 25841271 (Version 1)
Quarter: 2025Q3

REPORT INFORMATION
  Report Type: Other
  Country: JP (occurrence: JP)
  Receive Date: 20250924
  Receipt Date: 20250924
  Transmission Date: 20251020
  Serious: Yes (Hospitalization, Other)
  Sender: ANI
  Company Number: JP-ANIPHARMA-030675

PATIENT
  Age: 83 Year
  Sex: Female

DRUGS (9)
  1. HYDROCORTISONE [Suspect]
     Active Substance: HYDROCORTISONE
     Indication: Hypovolaemic shock
  2. METHYLPREDNISOLONE [Concomitant]
     Active Substance: METHYLPREDNISOLONE
     Indication: Liver injury
  3. TENOFOVIR [Concomitant]
     Active Substance: TENOFOVIR
     Indication: Liver injury
  4. EDOXABAN [Concomitant]
     Active Substance: EDOXABAN
     Indication: Pulmonary embolism
  5. CEFTAZIDIME [Concomitant]
     Active Substance: CEFTAZIDIME
     Indication: Hypovolaemic shock
  6. VANCOMYCIN [Concomitant]
     Active Substance: VANCOMYCIN
     Indication: Hypovolaemic shock
  7. MEROPENEM [Concomitant]
     Active Substance: MEROPENEM
     Indication: Hypovolaemic shock
  8. METHYLPREDNISOLONE [Concomitant]
     Active Substance: METHYLPREDNISOLONE
     Indication: Hepatitis B reactivation
  9. TENOFOVIR [Concomitant]
     Active Substance: TENOFOVIR
     Indication: Hepatitis B reactivation

REACTIONS (2)
  - Cytomegalovirus colitis [Unknown]
  - Diverticular perforation [Unknown]
